FAERS Safety Report 17239429 (Version 1)
Quarter: 2020Q1

REPORT INFORMATION
  Report Type: Spontaneous
  Country: CN (occurrence: CN)
  Receive Date: 20200106
  Receipt Date: 20200106
  Transmission Date: 20200409
  Serious: Yes (Other)
  Sender: FDA-Public Use
  Company Number: CN-FRESENIUS KABI-FK202000089

PATIENT
  Age: 9 Year
  Sex: Male

DRUGS (28)
  1. METHYLPREDNISOLONE (MANUFACTURER UNKNOWN) [Suspect]
     Active Substance: METHYLPREDNISOLONE
     Route: 065
  2. CLONAZEPAM. [Suspect]
     Active Substance: CLONAZEPAM
     Indication: MYOCLONIC EPILEPSY
     Dates: start: 201711
  3. PREDNISONE ACETATE [Suspect]
     Active Substance: PREDNISONE ACETATE
     Indication: MYOCLONIC EPILEPSY
     Route: 065
     Dates: start: 201408
  4. VALPROATE SODIUM. [Suspect]
     Active Substance: VALPROATE SODIUM
     Indication: MYOCLONIC EPILEPSY
     Route: 048
     Dates: start: 201402
  5. SACCHAROMYCES BOULARDII [Concomitant]
     Active Substance: SACCHAROMYCES CEREVISIAE
     Indication: NUTRITIONAL SUPPLEMENTATION
     Route: 050
  6. MIDAZOLAM (MANUFACTURER UNKNOWN) [Suspect]
     Active Substance: MIDAZOLAM HYDROCHLORIDE
     Route: 065
     Dates: start: 201711, end: 201711
  7. BACLOFEN. [Suspect]
     Active Substance: BACLOFEN
     Indication: MYOCLONIC EPILEPSY
     Route: 065
     Dates: start: 201709
  8. LAMOTRIGINE. [Suspect]
     Active Substance: LAMOTRIGINE
     Indication: MYOCLONIC EPILEPSY
     Route: 048
  9. VALPROATE SODIUM. [Suspect]
     Active Substance: VALPROATE SODIUM
     Dates: start: 2019
  10. CHLORAL HYDRATE [Suspect]
     Active Substance: CHLORAL HYDRATE
     Indication: MYOCLONIC EPILEPSY
     Route: 065
     Dates: start: 201711
  11. MILK, FAT FREE [Concomitant]
     Dates: start: 201712
  12. ASCORBIC ACID/BIOTIN/FOLIC ACID/THIAMINE/NICOTINIC ACID/CHOLINE/PYRIDOXINE/CYANOCOBALAMIN/RETINOL/PA [Concomitant]
     Indication: NUTRITIONAL SUPPLEMENTATION
     Dates: start: 201711
  13. ASCORBIC ACID/BIOTIN/FOLIC ACID/THIAMINE/NICOTINIC ACID/CHOLINE/PYRIDOXINE/CYANOCOBALAMIN/RETINOL/PA [Concomitant]
     Dates: start: 201712
  14. ASCORBIC ACID/BIOTIN/FOLIC ACID/THIAMINE/NICOTINIC ACID/CHOLINE/PYRIDOXINE/CYANOCOBALAMIN/RETINOL/PA [Concomitant]
     Dosage: WITH SKIM MILK
     Dates: start: 2019
  15. TRIHEXYPHENIDYL [Suspect]
     Active Substance: TRIHEXYPHENIDYL
     Indication: MYOCLONIC EPILEPSY
     Route: 048
  16. POTASSIUM [Concomitant]
     Active Substance: POTASSIUM
     Indication: PRODUCT USED FOR UNKNOWN INDICATION
     Route: 042
  17. MILK, FAT FREE [Concomitant]
     Dates: start: 201712
  18. GLUCOSE [Concomitant]
     Active Substance: DEXTROSE
     Indication: PRODUCT USED FOR UNKNOWN INDICATION
     Dosage: WITH SODIUM CHLORIDE
     Route: 042
  19. MILK, FAT FREE [Concomitant]
     Indication: NUTRITIONAL SUPPLEMENTATION
     Route: 050
  20. ASCORBIC ACID/BIOTIN/FOLIC ACID/THIAMINE/NICOTINIC ACID/CHOLINE/PYRIDOXINE/CYANOCOBALAMIN/RETINOL/PA [Concomitant]
     Dates: start: 201712
  21. MIDAZOLAM (MANUFACTURER UNKNOWN) [Suspect]
     Active Substance: MIDAZOLAM HYDROCHLORIDE
     Indication: MYOCLONIC EPILEPSY
     Route: 065
     Dates: start: 201711, end: 201711
  22. METHYLPREDNISOLONE (MANUFACTURER UNKNOWN) [Suspect]
     Active Substance: METHYLPREDNISOLONE
     Indication: MYOCLONIC EPILEPSY
     Dosage: HIGH DOSE
     Route: 065
     Dates: start: 201408
  23. LAMOTRIGINE. [Suspect]
     Active Substance: LAMOTRIGINE
     Route: 048
  24. MONTMORILLONITE [Concomitant]
     Active Substance: MONTMORILLONITE
     Indication: NUTRITIONAL SUPPLEMENTATION
     Route: 050
  25. CHLORAL HYDRATE [Suspect]
     Active Substance: CHLORAL HYDRATE
     Dates: start: 201712
  26. ARIPIPRAZOLE. [Suspect]
     Active Substance: ARIPIPRAZOLE
     Indication: MYOCLONIC EPILEPSY
     Route: 048
     Dates: start: 2014
  27. CLONAZEPAM. [Suspect]
     Active Substance: CLONAZEPAM
     Dates: start: 2019
  28. MILK, FAT FREE [Concomitant]
     Dosage: WITH PEPTAMEN JUNIOR MILK
     Dates: start: 2019

REACTIONS (2)
  - Malnutrition [Unknown]
  - Decreased appetite [Unknown]

NARRATIVE: CASE EVENT DATE: 2017
